FAERS Safety Report 9844408 (Version 1)
Quarter: 2014Q1

REPORT INFORMATION
  Report Type: Spontaneous
  Country: US (occurrence: US)
  Receive Date: 20140127
  Receipt Date: 20140127
  Transmission Date: 20141002
  Serious: Yes (Other)
  Sender: FDA-Public Use
  Company Number: PHEH2014US001546

PATIENT
  Sex: Male

DRUGS (4)
  1. RECLAST [Suspect]
     Dosage: UNK
     Route: 042
  2. RECLAST [Suspect]
     Dosage: UNK
     Route: 042
  3. RECLAST [Suspect]
     Dosage: UNK
     Route: 042
  4. RECLAST [Suspect]
     Dosage: UNK
     Route: 042

REACTIONS (2)
  - Transient ischaemic attack [Unknown]
  - Gingival pain [Unknown]
